FAERS Safety Report 17510516 (Version 2)
Quarter: 2020Q1

REPORT INFORMATION
  Report Type: Spontaneous
  Country: ES (occurrence: ES)
  Receive Date: 20200306
  Receipt Date: 20200319
  Transmission Date: 20200409
  Serious: Yes (Other)
  Sender: FDA-Public Use
  Company Number: ES-009507513-2002ESP010692

PATIENT
  Age: 74 Year
  Sex: Male

DRUGS (3)
  1. SINEMET PLUS RETARD 25/100 MG COMPRIMIDOS DE LIBERACI?N RETARDADA [Suspect]
     Active Substance: CARBIDOPA\LEVODOPA
     Dosage: HALF A TABLET PER DAY FOR ONE WEEK AND THEN CONTINUE WITH A TABLET PER DAY
     Route: 048
     Dates: start: 2020
  2. SINEMET PLUS 25/100 MG (IR) [Suspect]
     Active Substance: CARBIDOPA\LEVODOPA
     Indication: PARKINSON^S DISEASE
     Dosage: 2 TABLETS EVERY 5 HOUR (8 TABLETS PER DAY)
     Route: 048
     Dates: start: 201912
  3. SINEMET [Suspect]
     Active Substance: CARBIDOPA\LEVODOPA
     Indication: PARKINSON^S DISEASE
     Dosage: 3 TABLETS PER DAY
     Route: 048

REACTIONS (4)
  - Parkinson^s disease [Unknown]
  - Drug ineffective [Unknown]
  - Hallucination [Unknown]
  - Product dose omission [Unknown]

NARRATIVE: CASE EVENT DATE: 201912
